FAERS Safety Report 8177731-3 (Version None)
Quarter: 2012Q1

REPORT INFORMATION
  Report Type: 
  Country: None (occurrence: None)
  Receive Date: 20120301
  Receipt Date: 20120227
  Transmission Date: 20120608
  Serious: Yes (Other)
  Sender: FDA-Public Use
  Company Number: US-BAYER-2012-019515

PATIENT
  Sex: Female

DRUGS (1)
  1. YAZ [Suspect]
     Indication: PRODUCT USED FOR UNKNOWN INDICATION
     Dosage: UNK
     Dates: start: 20080501, end: 20090401

REACTIONS (5)
  - GALLBLADDER DISORDER [None]
  - PSYCHOLOGICAL TRAUMA [None]
  - PAIN [None]
  - ANHEDONIA [None]
  - ANXIETY [None]
